FAERS Safety Report 25022883 (Version 1)
Quarter: 2025Q1

REPORT INFORMATION
  Report Type: Spontaneous
  Country: US (occurrence: None)
  Receive Date: 20250227
  Receipt Date: 20250227
  Transmission Date: 20250409
  Serious: Yes (Death)
  Sender: FDA-CTU
  Company Number: None

PATIENT
  Age: 84 Year
  Sex: Female

DRUGS (2)
  1. LENALIDOMIDE [Suspect]
     Active Substance: LENALIDOMIDE
     Indication: Myelodysplastic syndrome
     Dosage: FREQUENCY : DAILY;?
     Route: 048
     Dates: start: 20200827, end: 20250215
  2. COUMADIN [Suspect]
     Active Substance: WARFARIN SODIUM

REACTIONS (11)
  - Asthenia [None]
  - Fall [None]
  - Back pain [None]
  - Hypophagia [None]
  - Therapy cessation [None]
  - Cerebrovascular accident [None]
  - Altered state of consciousness [None]
  - Coma scale abnormal [None]
  - Blood glucose decreased [None]
  - Blood pressure decreased [None]
  - Platelet count decreased [None]

NARRATIVE: CASE EVENT DATE: 20250215
